FAERS Safety Report 9096741 (Version 1)
Quarter: 2013Q1

REPORT INFORMATION
  Report Type: Spontaneous
  Country: IN (occurrence: None)
  Receive Date: 20130124
  Receipt Date: 20130124
  Transmission Date: 20140127
  Serious: Yes (Hospitalization, Other)
  Sender: FDA-Public Use
  Company Number: AUR-APL-2013-00487

PATIENT
  Age: 28 Year
  Sex: Male

DRUGS (5)
  1. MIRTAZAPINE [Suspect]
     Indication: SLEEP DISORDER
  2. CLONIDINE (CLONIDINE) [Concomitant]
  3. IBUPROFEN (IBUPROFEN) [Concomitant]
  4. NITRAZEPAM (NITRAZEPAM) [Concomitant]
  5. FLURAZEPAM (FLURAZEPAM) [Concomitant]

REACTIONS (5)
  - Periodic limb movement disorder [None]
  - Pain in extremity [None]
  - Pain in extremity [None]
  - Sleep disorder [None]
  - Dyskinesia [None]
